FAERS Safety Report 4836367-X (Version None)
Quarter: 2005Q4

REPORT INFORMATION
  Report Type: 
  Country: None (occurrence: None)
  Receive Date: 20051123
  Receipt Date: 20050701
  Transmission Date: 20060501
  Serious: Yes (Hospitalization)
  Sender: FDA-Public Use
  Company Number: ZA-ROCHE-409361

PATIENT
  Age: 61 Year
  Sex: Male
  Weight: 96 kg

DRUGS (4)
  1. CAPECITABINE [Suspect]
     Indication: COLON CANCER
     Dosage: 2 WEEKS THERAPY FOLLOWED BY 1 WEEK REST.
     Route: 048
     Dates: start: 20050606
  2. BEVACIZUMAB [Suspect]
     Indication: COLON CANCER
     Route: 042
     Dates: start: 20050606, end: 20050627
  3. BEVACIZUMAB [Suspect]
     Route: 042
     Dates: end: 20050829
  4. OXALIPLATIN [Suspect]
     Indication: COLON CANCER
     Route: 042
     Dates: start: 20050606

REACTIONS (4)
  - CATHETER SEPSIS [None]
  - DEEP VEIN THROMBOSIS [None]
  - STAPHYLOCOCCAL INFECTION [None]
  - THROMBOPHLEBITIS SUPERFICIAL [None]
